FAERS Safety Report 18953461 (Version 1)
Quarter: 2021Q1

REPORT INFORMATION
  Report Type: Spontaneous
  Country: US (occurrence: US)
  Receive Date: 20210228
  Receipt Date: 20210228
  Transmission Date: 20210420
  Serious: No
  Sender: FDA-Public Use
  Company Number: None

PATIENT
  Age: 61 Year
  Sex: Female

DRUGS (1)
  1. XELJANZ XR [Suspect]
     Active Substance: TOFACITINIB CITRATE
     Indication: RHEUMATOID ARTHRITIS
     Dosage: ON HOLD
     Route: 048
     Dates: start: 202101

REACTIONS (3)
  - Myocardial necrosis marker increased [None]
  - Chest pain [None]
  - Dysarthria [None]

NARRATIVE: CASE EVENT DATE: 202101
